FAERS Safety Report 7893083-8 (Version None)
Quarter: 2011Q4

REPORT INFORMATION
  Report Type: 
  Country: None (occurrence: None)
  Receive Date: 20111104
  Receipt Date: 20111031
  Transmission Date: 20120403
  Serious: Yes (Other)
  Sender: FDA-Public Use
  Company Number: NL-ABBOTT-11P-114-0869805-00

PATIENT
  Sex: Female
  Weight: 55 kg

DRUGS (1)
  1. HUMIRA [Suspect]
     Indication: RHEUMATOID ARTHRITIS
     Route: 058
     Dates: start: 20040901, end: 20110101

REACTIONS (30)
  - NAUSEA [None]
  - HYPERTENSION [None]
  - LABORATORY TEST ABNORMAL [None]
  - OEDEMA PERIPHERAL [None]
  - RASH [None]
  - COUGH [None]
  - ECZEMA [None]
  - VOMITING [None]
  - UPPER RESPIRATORY TRACT INFECTION [None]
  - ANXIETY [None]
  - RENAL IMPAIRMENT [None]
  - NASOPHARYNGITIS [None]
  - PNEUMONIA [None]
  - INTESTINAL HAEMORRHAGE [None]
  - ABDOMINAL PAIN [None]
  - TREMOR [None]
  - MYALGIA [None]
  - ORAL INFECTION [None]
  - SWELLING FACE [None]
  - UNEVALUABLE EVENT [None]
  - ARTHRALGIA [None]
  - INTESTINAL ULCER [None]
  - DYSPHAGIA [None]
  - SKIN INFECTION [None]
  - PRURITUS [None]
  - DYSPNOEA [None]
  - INSOMNIA [None]
  - HAEMATOMA [None]
  - WEIGHT DECREASED [None]
  - OESOPHAGEAL INFECTION [None]
